FAERS Safety Report 15137489 (Version 2)
Quarter: 2018Q3

REPORT INFORMATION
  Report Type: Spontaneous
  Country: CN (occurrence: CN)
  Receive Date: 20180712
  Receipt Date: 20180722
  Transmission Date: 20181010
  Serious: Yes (Other)
  Sender: FDA-Public Use
  Company Number: CN-009507513-1807CHN003579

PATIENT
  Sex: Male

DRUGS (1)
  1. FOSAMAX PLUS D [Suspect]
     Active Substance: ALENDRONATE SODIUM\CHOLECALCIFEROL
     Dosage: 2800 IU (ONE TABLET) PER WEEK
     Route: 048
     Dates: start: 2017

REACTIONS (1)
  - Retinal vasculitis [Unknown]

NARRATIVE: CASE EVENT DATE: 201803
